FAERS Safety Report 11404249 (Version 1)
Quarter: 2015Q3

REPORT INFORMATION
  Report Type: Spontaneous
  Country: GB (occurrence: GB)
  Receive Date: 20150821
  Receipt Date: 20150821
  Transmission Date: 20151125
  Serious: Yes (Disabling)
  Sender: FDA-Public Use
  Company Number: GB-GLAXOSMITHKLINE INC.-GB2015119564

PATIENT
  Age: 17 Year
  Sex: Female
  Weight: 80 kg

DRUGS (4)
  1. AMITRIPTYLINE HYDROCHLORIDE. [Concomitant]
     Active Substance: AMITRIPTYLINE HYDROCHLORIDE
     Dosage: ONE INCREASING TO TWO AT NIGHT IF TOLERATED
     Dates: start: 20150623
  2. ZOLMITRIPTAN. [Concomitant]
     Active Substance: ZOLMITRIPTAN
     Indication: MIGRAINE
     Dosage: TAKE ONE AT START OF MIGRAINE, REPEATED AFTER 2.
     Dates: start: 20150722, end: 20150723
  3. ZELLETA [Concomitant]
     Dates: start: 20140407
  4. SUMATRIPTAN. [Suspect]
     Active Substance: SUMATRIPTAN
     Dates: start: 20150722

REACTIONS (2)
  - Oral discomfort [Recovered/Resolved]
  - Vomiting [Recovered/Resolved]

NARRATIVE: CASE EVENT DATE: 20150722
